FAERS Safety Report 6237391-5 (Version None)
Quarter: 2009Q2

REPORT INFORMATION
  Report Type: 
  Country: None (occurrence: None)
  Receive Date: 20090619
  Receipt Date: 20090616
  Transmission Date: 20091009
  Serious: Yes (Hospitalization)
  Sender: FDA-Public Use
  Company Number: GR-ABBOTT-09P-066-0580094-00

PATIENT
  Age: 70 Year
  Sex: Male
  Weight: 73 kg

DRUGS (14)
  1. ZEMPLAR [Suspect]
     Indication: HYPERPARATHYROIDISM SECONDARY
     Route: 042
     Dates: start: 20071217
  2. EPREX [Concomitant]
     Indication: DRUG USE FOR UNKNOWN INDICATION
  3. VENOFER [Concomitant]
     Indication: DRUG USE FOR UNKNOWN INDICATION
  4. SUPERAMIN [Concomitant]
     Indication: DRUG USE FOR UNKNOWN INDICATION
  5. NEUROBION [Concomitant]
     Indication: DRUG USE FOR UNKNOWN INDICATION
  6. LOFTYL [Concomitant]
     Indication: DRUG USE FOR UNKNOWN INDICATION
  7. FORSENOL [Concomitant]
     Indication: DRUG USE FOR UNKNOWN INDICATION
  8. LASIX [Concomitant]
     Indication: DRUG USE FOR UNKNOWN INDICATION
  9. SIMVASTATIN [Concomitant]
     Indication: DRUG USE FOR UNKNOWN INDICATION
  10. PRILOSEC [Concomitant]
     Indication: DRUG USE FOR UNKNOWN INDICATION
  11. MIACALCIN [Concomitant]
     Indication: DRUG USE FOR UNKNOWN INDICATION
  12. LANTUS [Concomitant]
     Indication: DRUG USE FOR UNKNOWN INDICATION
  13. REMERON [Concomitant]
     Indication: DRUG USE FOR UNKNOWN INDICATION
  14. NEURONTIN [Concomitant]
     Indication: CHOLECYSTECTOMY

REACTIONS (1)
  - CHOLELITHIASIS [None]
